FAERS Safety Report 7936597-4 (Version None)
Quarter: 2011Q4

REPORT INFORMATION
  Report Type: 
  Country: None (occurrence: None)
  Receive Date: 20111121
  Receipt Date: 20110919
  Transmission Date: 20120403
  Serious: No
  Sender: FDA-Public Use
  Company Number: 2011029818

PATIENT
  Sex: Female

DRUGS (4)
  1. VITAMIN E [Concomitant]
  2. BERINERT [Suspect]
     Indication: ENZYME ABNORMALITY
     Dosage: (ABOUT EVERY 5 DAYS INTRAVENOUS (NOT OTHERWISE SPECIFIED))
     Route: 042
  3. BERINERT [Suspect]
     Indication: HEREDITARY ANGIOEDEMA
     Dosage: (ABOUT EVERY 5 DAYS INTRAVENOUS (NOT OTHERWISE SPECIFIED))
     Route: 042
  4. HIZENTRA [Concomitant]

REACTIONS (3)
  - JOINT SWELLING [None]
  - OEDEMA PERIPHERAL [None]
  - CONTUSION [None]
